FAERS Safety Report 6013513-6 (Version None)
Quarter: 2008Q4

REPORT INFORMATION
  Report Type: 
  Country: None (occurrence: None)
  Receive Date: 20081219
  Receipt Date: 20081210
  Transmission Date: 20090506
  Serious: Yes (Death)
  Sender: FDA-Public Use
  Company Number: PHHY2008JP31682

PATIENT
  Age: 59 Year
  Sex: Male

DRUGS (2)
  1. NEORAL [Suspect]
     Indication: STEM CELL TRANSPLANT
  2. MYCOPHENOLATE MOFETIL [Suspect]
     Indication: STEM CELL TRANSPLANT

REACTIONS (1)
  - IDIOPATHIC PNEUMONIA SYNDROME [None]
